FAERS Safety Report 15859329 (Version 1)
Quarter: 2019Q1

REPORT INFORMATION
  Report Type: Spontaneous
  Country: US (occurrence: US)
  Receive Date: 20190123
  Receipt Date: 20190123
  Transmission Date: 20190417
  Serious: Yes (Hospitalization)
  Sender: FDA-Public Use
  Company Number: None

PATIENT
  Age: 53 Year
  Sex: Female
  Weight: 51.75 kg

DRUGS (1)
  1. LINZESS [Suspect]
     Active Substance: LINACLOTIDE
     Indication: CONSTIPATION
     Dosage: ?          QUANTITY:30 CAPSULE(S);?
     Route: 048

REACTIONS (4)
  - Internal haemorrhage [None]
  - Colonic abscess [None]
  - Diverticulitis [None]
  - Large intestine perforation [None]

NARRATIVE: CASE EVENT DATE: 20180615
